FAERS Safety Report 15434599 (Version 1)
Quarter: 2018Q3

REPORT INFORMATION
  Report Type: Spontaneous
  Country: FI (occurrence: FI)
  Receive Date: 20180927
  Receipt Date: 20180927
  Transmission Date: 20181010
  Serious: Yes (Other)
  Sender: FDA-Public Use
  Company Number: FI-ABBVIE-18K-055-2498433-00

PATIENT
  Age: 15 Year

DRUGS (1)
  1. HUMIRA [Suspect]
     Active Substance: ADALIMUMAB
     Indication: PRODUCT USED FOR UNKNOWN INDICATION
     Route: 058

REACTIONS (11)
  - Hepatitis [Unknown]
  - Eye inflammation [Unknown]
  - Gallbladder operation [Unknown]
  - IgA nephropathy [Unknown]
  - Proctocolectomy [Unknown]
  - Migraine [Unknown]
  - Cachexia [Unknown]
  - Crohn^s disease [Unknown]
  - Thyroid cyst [Unknown]
  - Anorectal disorder [Unknown]
  - Dermatitis [Unknown]
